FAERS Safety Report 5532313-4 (Version None)
Quarter: 2007Q4

REPORT INFORMATION
  Report Type: 
  Country: None (occurrence: None)
  Receive Date: 20071129
  Receipt Date: 20071119
  Transmission Date: 20080405
  Serious: Yes (Other)
  Sender: FDA-Public Use
  Company Number: 2007335529

PATIENT
  Sex: Male

DRUGS (1)
  1. ROGAINE EXTRA STRENGTH (FOR MEN) [Suspect]
     Dosage: TOPICAL
     Route: 061

REACTIONS (5)
  - ANOREXIA [None]
  - DEPRESSION [None]
  - FATIGUE [None]
  - IMPAIRED WORK ABILITY [None]
  - NONSPECIFIC REACTION [None]
